FAERS Safety Report 5146127-0 (Version None)
Quarter: 2006Q4

REPORT INFORMATION
  Report Type: 
  Country: None (occurrence: None)
  Receive Date: 20061108
  Receipt Date: 20061020
  Transmission Date: 20070319
  Serious: Yes (Other)
  Sender: FDA-Public Use
  Company Number: JP-MERCK-0611USA01729

PATIENT
  Age: 55 Year
  Sex: Female
  Weight: 62 kg

DRUGS (4)
  1. COZAAR [Suspect]
     Indication: HYPERTENSION
     Route: 048
     Dates: start: 20060509, end: 20061018
  2. NIVADIL [Concomitant]
     Indication: HYPERTENSION
     Route: 048
     Dates: start: 20021227
  3. MERISLON [Concomitant]
     Indication: DIZZINESS
     Route: 048
     Dates: start: 20060726, end: 20061018
  4. DEPAS [Concomitant]
     Indication: TENSION HEADACHE
     Route: 048
     Dates: start: 20060726, end: 20061018

REACTIONS (1)
  - SUBCUTANEOUS HAEMATOMA [None]
